FAERS Safety Report 7980709-3 (Version None)
Quarter: 2011Q4

REPORT INFORMATION
  Report Type: 
  Country: None (occurrence: None)
  Receive Date: 20111214
  Receipt Date: 20111208
  Transmission Date: 20120403
  Serious: Yes (Other)
  Sender: FDA-Public Use
  Company Number: US-BAYER-2011-118399

PATIENT
  Sex: Male

DRUGS (1)
  1. AVELOX [Suspect]
     Indication: NASOPHARYNGITIS
     Dosage: UNK UNK, ONCE
     Route: 048
     Dates: start: 20111025, end: 20111025

REACTIONS (1)
  - HYPERSENSITIVITY [None]
